FAERS Safety Report 5718711-4 (Version None)
Quarter: 2008Q2

REPORT INFORMATION
  Report Type: 
  Country: None (occurrence: None)
  Receive Date: 20080425
  Receipt Date: 20080414
  Transmission Date: 20081010
  Serious: Yes (Other)
  Sender: FDA-Public Use
  Company Number: GB-PFIZER INC-2008033764

PATIENT
  Age: 79 Year

DRUGS (1)
  1. GABAPENTIN [Suspect]

REACTIONS (1)
  - CHORIORETINAL ATROPHY [None]
